FAERS Safety Report 7519215-9 (Version None)
Quarter: 2011Q2

REPORT INFORMATION
  Report Type: 
  Country: None (occurrence: None)
  Receive Date: 20110602
  Receipt Date: 20110222
  Transmission Date: 20111010
  Serious: No
  Sender: FDA-Public Use
  Company Number: US-BRISTOL-MYERS SQUIBB COMPANY-15563216

PATIENT
  Age: 60 Year
  Sex: Male

DRUGS (2)
  1. KOMBIGLYZE XR [Suspect]
     Dosage: KOMBIGLYZE XR,DOSE TAKEN FOR 4-5 DAYS.
  2. METFORMIN HCL [Concomitant]

REACTIONS (2)
  - DIARRHOEA [None]
  - HEADACHE [None]
